FAERS Safety Report 5291296-5 (Version None)
Quarter: 2007Q2

REPORT INFORMATION
  Report Type: 
  Country: None (occurrence: None)
  Receive Date: 20070409
  Receipt Date: 20070328
  Transmission Date: 20071010
  Serious: Yes (Other)
  Sender: FDA-Public Use
  Company Number: US-PFIZER INC-2007025596

PATIENT
  Age: 19 Year
  Sex: Male

DRUGS (1)
  1. RELPAX [Suspect]

REACTIONS (4)
  - CEREBRAL THROMBOSIS [None]
  - HEADACHE [None]
  - PAROSMIA [None]
  - THROMBOSIS [None]
